FAERS Safety Report 24628648 (Version 4)
Quarter: 2025Q2

REPORT INFORMATION
  Report Type: Report from Study
  Country: US (occurrence: US)
  Receive Date: 20241117
  Receipt Date: 20250611
  Transmission Date: 20250717
  Serious: Yes (Other)
  Sender: UCB
  Company Number: US-UCBSA-2024058790

PATIENT
  Age: 23 Year
  Sex: Female
  Weight: 73.5 kg

DRUGS (2)
  1. FINTEPLA [Suspect]
     Active Substance: FENFLURAMINE
     Indication: Severe myoclonic epilepsy of infancy
     Dosage: 4 MILLILITER, 2X/DAY (BID)
     Route: 048
     Dates: start: 20201124
  2. FINTEPLA [Suspect]
     Active Substance: FENFLURAMINE

REACTIONS (1)
  - Tricuspid valve incompetence [Recovered/Resolved]

NARRATIVE: CASE EVENT DATE: 20241029
